FAERS Safety Report 13823781 (Version 1)
Quarter: 2017Q3

REPORT INFORMATION
  Report Type: Spontaneous
  Country: US (occurrence: US)
  Receive Date: 20170802
  Receipt Date: 20170802
  Transmission Date: 20171127
  Serious: No
  Sender: FDA-Public Use
  Company Number: US-PFIZER INC-2017332729

PATIENT
  Sex: Female

DRUGS (1)
  1. XELJANZ XR [Suspect]
     Active Substance: TOFACITINIB CITRATE
     Dosage: 11 MG, DAILY

REACTIONS (13)
  - Flatulence [Unknown]
  - Joint range of motion decreased [Unknown]
  - Arthralgia [Unknown]
  - Joint stiffness [Unknown]
  - Bursa disorder [Unknown]
  - Abdominal distension [Unknown]
  - Alanine aminotransferase increased [Unknown]
  - Anxiety [Unknown]
  - Tenderness [Unknown]
  - Back pain [Unknown]
  - Pain in extremity [Unknown]
  - Fatigue [Unknown]
  - Abdominal discomfort [Unknown]
